FAERS Safety Report 17077594 (Version 2)
Quarter: 2020Q1

REPORT INFORMATION
  Report Type: Report from Study
  Country: US (occurrence: US)
  Receive Date: 20191126
  Receipt Date: 20200107
  Transmission Date: 20200409
  Serious: Yes (Hospitalization, Other)
  Sender: FDA-Public Use
  Company Number: US-ACTELION-A-NJ2019-196395

PATIENT
  Age: 76 Year
  Sex: Female
  Weight: 43.54 kg

DRUGS (11)
  1. OPSUMIT [Suspect]
     Active Substance: MACITENTAN
     Indication: PULMONARY ARTERIAL HYPERTENSION
     Dosage: 10 MG, QD
     Route: 048
     Dates: start: 201907
  2. OXYGEN. [Concomitant]
     Active Substance: OXYGEN
  3. UPTRAVI [Suspect]
     Active Substance: SELEXIPAG
     Indication: PULMONARY ARTERIAL HYPERTENSION
     Route: 048
  4. FOLIC ACID. [Concomitant]
     Active Substance: FOLIC ACID
     Dosage: UNK, QD
     Dates: start: 2019
  5. LEVOTHYROXINE. [Concomitant]
     Active Substance: LEVOTHYROXINE
     Dosage: UNK, QD
     Dates: start: 2015
  6. SILDENAFIL. [Concomitant]
     Active Substance: SILDENAFIL
     Dosage: UNK, TID
     Dates: start: 2017
  7. PANTOPRAZOLE [Concomitant]
     Active Substance: PANTOPRAZOLE
     Dosage: UNK, QD
  8. IRON [Concomitant]
     Active Substance: IRON
     Dosage: 325 MG, QD
     Dates: start: 2019
  9. BABY ASPIRIN [Concomitant]
     Active Substance: ASPIRIN
     Dosage: UNK, QD
     Dates: start: 201905
  10. PLAVIX [Concomitant]
     Active Substance: CLOPIDOGREL BISULFATE
     Dosage: UNK, QD
     Dates: start: 201605
  11. MYCOPHENOLATE [Concomitant]
     Active Substance: MYCOPHENOLIC ACID
     Dosage: 750 MG, BID

REACTIONS (11)
  - Blood count abnormal [Recovering/Resolving]
  - Nasopharyngitis [Unknown]
  - Transfusion [Unknown]
  - Gastric perforation [Unknown]
  - Gastric operation [Unknown]
  - Oxygen consumption increased [Not Recovered/Not Resolved]
  - Adverse event [Unknown]
  - Anaemia [Not Recovered/Not Resolved]
  - Fatigue [Unknown]
  - Haemoglobin decreased [Unknown]
  - Condition aggravated [Not Recovered/Not Resolved]

NARRATIVE: CASE EVENT DATE: 201908
